FAERS Safety Report 26215645 (Version 1)
Quarter: 2025Q4

REPORT INFORMATION
  Report Type: Spontaneous
  Country: PY (occurrence: PY)
  Receive Date: 20251231
  Receipt Date: 20251231
  Transmission Date: 20260118
  Serious: Yes (Death)
  Sender: ROCHE
  Company Number: PY-ROCHE-10000472202

PATIENT
  Sex: Male

DRUGS (1)
  1. TECENTRIQ [Suspect]
     Active Substance: ATEZOLIZUMAB
     Indication: Hepatocellular carcinoma
     Dosage: DOSE AND FREQUENCY WERE NOT REPORTED

REACTIONS (1)
  - Death [Fatal]
